FAERS Safety Report 4586418-5 (Version None)
Quarter: 2005Q1

REPORT INFORMATION
  Report Type: 
  Country: None (occurrence: None)
  Receive Date: 20050218
  Receipt Date: 20050211
  Transmission Date: 20050727
  Serious: Yes (Death)
  Sender: FDA-Public Use
  Company Number: PHEH2005US01966

PATIENT
  Age: 86 Year
  Sex: Male

DRUGS (3)
  1. CLOZARIL [Suspect]
     Indication: PARKINSON'S DISEASE
     Dosage: 25 MG, QHS FOR ONE WEEK
     Route: 048
     Dates: start: 20030201, end: 20030201
  2. SINEMET [Concomitant]
     Indication: PARKINSON'S DISEASE
  3. SEROQUEL [Concomitant]
     Indication: HALLUCINATION

REACTIONS (1)
  - PARKINSON'S DISEASE [None]
